FAERS Safety Report 5248985-8 (Version None)
Quarter: 2007Q1

REPORT INFORMATION
  Report Type: 
  Country: None (occurrence: None)
  Receive Date: 20070228
  Receipt Date: 20060425
  Transmission Date: 20070707
  Serious: No
  Sender: FDA-Public Use
  Company Number: US-GLAXOSMITHKLINE-A0603251A

PATIENT
  Age: 30 Year
  Sex: Female

DRUGS (2)
  1. VALTREX [Suspect]
     Dosage: 500MG PER DAY
     Route: 048
  2. PHENTERMINE HYDROCHLORIDE [Concomitant]

REACTIONS (2)
  - ACNE [None]
  - DRUG INEFFECTIVE [None]
